FAERS Safety Report 21300950 (Version 3)
Quarter: 2022Q3

REPORT INFORMATION
  Report Type: Spontaneous
  Country: US (occurrence: US)
  Receive Date: 20220907
  Receipt Date: 20220920
  Transmission Date: 20221027
  Serious: Yes (Other)
  Sender: FDA-Public Use
  Company Number: US-BIOCODEX2-2022001171

PATIENT
  Age: 30 Year
  Sex: Male
  Weight: 92.1 kg

DRUGS (10)
  1. DIACOMIT [Suspect]
     Active Substance: STIRIPENTOL
     Indication: Idiopathic generalised epilepsy
     Dosage: 1 CAPSULE BY MOUTH THREE TIMES A DAY
     Route: 048
  2. DIACOMIT [Suspect]
     Active Substance: STIRIPENTOL
     Indication: Idiopathic generalised epilepsy
     Dosage: 750 MG BY MOUTH THREE TIMES DAILY, UTILIZING BOTH THE DIACOMIT 500 AND 250MG CAPSULES.
  3. DIACOMIT [Suspect]
     Active Substance: STIRIPENTOL
     Indication: Idiopathic generalised epilepsy
     Dosage: 500MG TWICE A DAY
     Dates: start: 20220909
  4. CLOBAZAM [Concomitant]
     Active Substance: CLOBAZAM
     Indication: Product used for unknown indication
     Route: 065
  5. FLONASE (OTC) [Concomitant]
     Indication: Hypersensitivity
     Route: 065
  6. MELATONIN [Concomitant]
     Active Substance: MELATONIN
     Indication: Product used for unknown indication
     Route: 065
  7. NAYZILAM [Concomitant]
     Active Substance: MIDAZOLAM
     Indication: Product used for unknown indication
     Route: 065
  8. NEXIUM [Concomitant]
     Active Substance: ESOMEPRAZOLE MAGNESIUM
     Indication: Product used for unknown indication
     Route: 065
  9. vitamin D3 (SYN) [Concomitant]
     Indication: Product used for unknown indication
     Route: 065
  10. BENADRYL [Concomitant]
     Active Substance: DIPHENHYDRAMINE HYDROCHLORIDE
     Indication: Product used for unknown indication
     Route: 065

REACTIONS (6)
  - Seizure [Unknown]
  - Product use in unapproved indication [Unknown]
  - Decreased appetite [Unknown]
  - Insomnia [Unknown]
  - Balance disorder [Unknown]
  - Condition aggravated [Unknown]

NARRATIVE: CASE EVENT DATE: 20220909
